FAERS Safety Report 5216547-4 (Version None)
Quarter: 2007Q1

REPORT INFORMATION
  Report Type: 
  Country: None (occurrence: None)
  Receive Date: 20061130
  Receipt Date: 20060816
  Transmission Date: 20070707
  Serious: Yes (Other)
  Sender: FDA-Public Use
  Company Number: US200608003504

PATIENT
  Age: 31 Year
  Sex: Female
  Weight: 83.9 kg

DRUGS (3)
  1. ZYPREXA [Suspect]
     Dosage: 15 MG, DAILY (1/D), ORAL
     Route: 048
     Dates: start: 19980501, end: 20030101
  2. EFFEXOR [Concomitant]
  3. GEODON [Concomitant]

REACTIONS (5)
  - BLOOD TRIGLYCERIDES INCREASED [None]
  - DIABETES MELLITUS [None]
  - INSULIN RESISTANCE [None]
  - PANCREATITIS [None]
  - POLYCYSTIC OVARIES [None]
